FAERS Safety Report 6433495-2 (Version None)
Quarter: 2009Q4

REPORT INFORMATION
  Report Type: 
  Country: None (occurrence: None)
  Receive Date: 20091106
  Receipt Date: 20091106
  Transmission Date: 20100525
  Serious: Yes (Other)
  Sender: FDA-Public Use
  Company Number: None

PATIENT
  Age: 6 Year
  Sex: Male
  Weight: 24.4942 kg

DRUGS (2)
  1. VYVANSE [Suspect]
     Indication: ATTENTION DEFICIT/HYPERACTIVITY DISORDER
     Dosage: 20 MG 1XDAILY PO
     Route: 048
     Dates: start: 20090924, end: 20091014
  2. VYVANSE [Suspect]
     Dosage: 30 MG 1XDAILY PO
     Route: 048
     Dates: start: 20091015, end: 20091102

REACTIONS (6)
  - CONFUSIONAL STATE [None]
  - DYSPHEMIA [None]
  - FEELING ABNORMAL [None]
  - INSOMNIA [None]
  - NIGHTMARE [None]
  - TIC [None]
